FAERS Safety Report 4872093-9 (Version None)
Quarter: 2005Q4

REPORT INFORMATION
  Report Type: 
  Country: None (occurrence: None)
  Receive Date: 20051230
  Receipt Date: 20051219
  Transmission Date: 20060501
  Serious: Yes (Life-Threatening, Hospitalization, Other)
  Sender: FDA-Public Use
  Company Number: 2005160461

PATIENT
  Age: 60 Year
  Sex: Male
  Weight: 43.5453 kg

DRUGS (4)
  1. CELEBREX [Suspect]
     Indication: NON-SMALL CELL LUNG CANCER
     Dosage: (1 IN 1 D)
  2. CARBOPLATIN [Suspect]
     Indication: NON-SMALL CELL LUNG CANCER
     Dosage: AUC=2 (1 IN 1 WK), INTRAVENOUS
     Route: 042
     Dates: start: 20010921
  3. TAXOL [Suspect]
     Indication: NON-SMALL CELL LUNG CANCER
     Dosage: 50 MG/M*2 (50 MG/M*2, 1 IN 1 WK), INTRAVENOUS
     Route: 042
     Dates: start: 20010921
  4. THERAPEUTIC RADIOPHARMACEUTICALS (THERAPEUTIC RADIOPHARMACEUTICALS) [Suspect]
     Indication: NON-SMALL CELL LUNG CANCER
     Dosage: (1 IN 1 D)

REACTIONS (7)
  - BULLOUS LUNG DISEASE [None]
  - DILATATION ATRIAL [None]
  - LUNG ABSCESS [None]
  - LUNG INFILTRATION [None]
  - PNEUMONIA BACTERIAL [None]
  - PULMONARY PNEUMATOCELE [None]
  - TACHYCARDIA [None]
